FAERS Safety Report 4410594-8 (Version None)
Quarter: 2004Q3

REPORT INFORMATION
  Report Type: 
  Country: None (occurrence: None)
  Receive Date: 20040726
  Receipt Date: 20040719
  Transmission Date: 20050211
  Serious: Yes (Death)
  Sender: FDA-Public Use
  Company Number: US-JNJFOC-20040400330

PATIENT
  Age: 84 Year
  Sex: Female

DRUGS (9)
  1. RISPERDAL [Suspect]
     Indication: DEMENTIA
     Dosage: 1 MG, 2 IN 1 DAY, ORAL
     Route: 048
     Dates: start: 20040201, end: 20040401
  2. SEROQUEL [Concomitant]
  3. COUMADIN [Concomitant]
  4. HEART MEDICATION (CARDIAC THERAPY) [Concomitant]
  5. LORAZEPAM [Concomitant]
  6. FUROSEMIDE [Concomitant]
  7. ARICEPT [Concomitant]
  8. AMIBEN (ZOLPIDEM TARTRATE) [Concomitant]
  9. DILTIAZEM CD (DILTIAZEM HYDROCHLORIDE) [Concomitant]

REACTIONS (13)
  - ARRHYTHMIA [None]
  - BLOOD GLUCOSE INCREASED [None]
  - DIFFICULTY IN WALKING [None]
  - DRY MOUTH [None]
  - DYSPHAGIA [None]
  - FATIGUE [None]
  - GAIT DISTURBANCE [None]
  - HYPOACUSIS [None]
  - LYMPHOCYTE COUNT DECREASED [None]
  - MEMORY IMPAIRMENT [None]
  - MUSCULOSKELETAL STIFFNESS [None]
  - OEDEMA PERIPHERAL [None]
  - POSTURE ABNORMAL [None]
